FAERS Safety Report 7866199-X (Version None)
Quarter: 2011Q4

REPORT INFORMATION
  Report Type: 
  Country: None (occurrence: None)
  Receive Date: 20111028
  Receipt Date: 20110505
  Transmission Date: 20120403
  Serious: No
  Sender: FDA-Public Use
  Company Number: US-GLAXOSMITHKLINE-A0926859A

PATIENT
  Age: 80 Year
  Sex: Female
  Weight: 53.6 kg

DRUGS (18)
  1. MECLIZINE [Concomitant]
     Indication: VERTIGO
  2. YUCCA ROOT [Concomitant]
  3. BUTCHER'S BROOM [Concomitant]
  4. ASCORBIC ACID [Concomitant]
  5. SELENIUM [Concomitant]
  6. VICODIN ES [Concomitant]
  7. GARLIC [Concomitant]
  8. HYDROXYZINE [Concomitant]
  9. ADVAIR DISKUS 100/50 [Suspect]
     Indication: CHRONIC OBSTRUCTIVE PULMONARY DISEASE
     Dosage: 1PUFF TWICE PER DAY
     Route: 055
     Dates: start: 20101130
  10. NITROSTAT [Concomitant]
     Route: 060
  11. VITAMIN B6 [Concomitant]
  12. SUPPLEMENT [Concomitant]
  13. LISINOPRIL [Concomitant]
  14. PROTONIX [Concomitant]
  15. COD LIVER OIL [Concomitant]
  16. CALCIUM GLUCONATE [Concomitant]
  17. GUAIFENESIN [Concomitant]
     Indication: COUGH
  18. NITROGLYCERIN [Concomitant]
     Route: 060

REACTIONS (4)
  - DRUG INEFFECTIVE [None]
  - PRODUCT QUALITY ISSUE [None]
  - DYSPNOEA [None]
  - DRUG ADMINISTRATION ERROR [None]
